FAERS Safety Report 16445419 (Version 5)
Quarter: 2019Q3

REPORT INFORMATION
  Report Type: Spontaneous
  Country: CN (occurrence: CN)
  Receive Date: 20190618
  Receipt Date: 20190816
  Transmission Date: 20191004
  Serious: Yes (Life-Threatening, Hospitalization, Other)
  Sender: FDA-Public Use
  Company Number: PHHY2019CN137795

PATIENT
  Age: 79 Year
  Sex: Male
  Weight: 67 kg

DRUGS (1)
  1. ENTRESTO [Suspect]
     Active Substance: SACUBITRIL\VALSARTAN
     Indication: CARDIOMEGALY
     Dosage: 50 MG, BID
     Route: 048
     Dates: start: 20190403, end: 20190603

REACTIONS (28)
  - Dyspnoea [Recovering/Resolving]
  - Cholelithiasis [Unknown]
  - Palpitations [Recovering/Resolving]
  - Cholecystitis [Unknown]
  - Oedema [Recovering/Resolving]
  - Ventricular internal diameter abnormal [Recovering/Resolving]
  - Lung infection [Unknown]
  - Discomfort [Recovering/Resolving]
  - Ejection fraction decreased [Not Recovered/Not Resolved]
  - Chronic kidney disease [Unknown]
  - Pleural effusion [Unknown]
  - Cerebral disorder [Recovering/Resolving]
  - Electrolyte imbalance [Unknown]
  - Brain natriuretic peptide increased [Unknown]
  - Sputum discoloured [Recovering/Resolving]
  - Dyspnoea paroxysmal nocturnal [Recovering/Resolving]
  - Ischaemic cardiomyopathy [Unknown]
  - Product use in unapproved indication [Unknown]
  - Sinus rhythm [Unknown]
  - Cough [Recovering/Resolving]
  - Blood creatinine decreased [Not Recovered/Not Resolved]
  - Swelling [Unknown]
  - Joint swelling [Unknown]
  - Chest discomfort [Recovering/Resolving]
  - Dizziness [Recovering/Resolving]
  - Fatigue [Recovering/Resolving]
  - Condition aggravated [Unknown]
  - Peripheral swelling [Unknown]

NARRATIVE: CASE EVENT DATE: 20190403
